FAERS Safety Report 18957606 (Version 1)
Quarter: 2021Q1

REPORT INFORMATION
  Report Type: Spontaneous
  Country: US (occurrence: US)
  Receive Date: 20210301
  Receipt Date: 20210301
  Transmission Date: 20210420
  Serious: No
  Sender: FDA-Public Use
  Company Number: None

PATIENT
  Age: 68 Year
  Sex: Male

DRUGS (1)
  1. CAPECITABINE TAB 500MG [Suspect]
     Active Substance: CAPECITABINE
     Dosage: OTHER
     Route: 048

REACTIONS (4)
  - Muscular weakness [None]
  - Asthenia [None]
  - Dysstasia [None]
  - Fatigue [None]

NARRATIVE: CASE EVENT DATE: 20210201
